FAERS Safety Report 18291849 (Version 1)
Quarter: 2020Q3

REPORT INFORMATION
  Report Type: Report from Study
  Country: CA (occurrence: CA)
  Receive Date: 20200921
  Receipt Date: 20200921
  Transmission Date: 20201103
  Serious: Yes (Other)
  Sender: FDA-Public Use
  Company Number: CA-JNJFOC-20191113069

PATIENT
  Age: 14 Year
  Sex: Male
  Weight: 63.9 kg

DRUGS (3)
  1. STELARA [Suspect]
     Active Substance: USTEKINUMAB
  2. DOXYCYCLINE. [Concomitant]
     Active Substance: DOXYCYCLINE
     Indication: PRODUCT USED FOR UNKNOWN INDICATION
     Dosage: 1 DOSE
     Dates: start: 20191101
  3. STELARA [Suspect]
     Active Substance: USTEKINUMAB
     Indication: PSORIASIS
     Route: 058

REACTIONS (4)
  - Behaviour disorder [Not Recovered/Not Resolved]
  - Cough [Recovering/Resolving]
  - Nasal congestion [Recovering/Resolving]
  - Lyme disease [Unknown]

NARRATIVE: CASE EVENT DATE: 201911
